FAERS Safety Report 23447371 (Version 5)
Quarter: 2024Q2

REPORT INFORMATION
  Report Type: Spontaneous
  Country: PL (occurrence: PL)
  Receive Date: 20240126
  Receipt Date: 20240403
  Transmission Date: 20240716
  Serious: Yes (Death, Other)
  Sender: FDA-Public Use
  Company Number: PL-002147023-NVSC2024PL014241

PATIENT
  Age: 23 Month
  Sex: Female
  Weight: 10.7 kg

DRUGS (1)
  1. KYMRIAH [Suspect]
     Active Substance: TISAGENLECLEUCEL
     Indication: B-cell type acute leukaemia
     Dosage: UNK, ONCE/SINGLE
     Route: 042
     Dates: start: 20231208, end: 20231208

REACTIONS (4)
  - Neutropenic infection [Fatal]
  - Acute myeloid leukaemia recurrent [Fatal]
  - Pancreatitis [Fatal]
  - Sepsis [Fatal]

NARRATIVE: CASE EVENT DATE: 20240104
